FAERS Safety Report 8367636-7 (Version None)
Quarter: 2012Q2

REPORT INFORMATION
  Report Type: 
  Country: None (occurrence: None)
  Receive Date: 20120517
  Receipt Date: 20120509
  Transmission Date: 20120825
  Serious: Yes (Other)
  Sender: FDA-Public Use
  Company Number: AU-BRISTOL-MYERS SQUIBB COMPANY-15900152

PATIENT
  Age: 55 Year
  Sex: Male
  Weight: 106 kg

DRUGS (13)
  1. METHOTREXATE [Concomitant]
  2. INSULIN [Concomitant]
  3. DUATROL [Concomitant]
  4. PLAQUENIL [Concomitant]
  5. ATENOLOL [Concomitant]
  6. FOLIC ACID [Concomitant]
  7. EXFORGE [Concomitant]
  8. ORENCIA [Suspect]
     Indication: RHEUMATOID ARTHRITIS
     Dosage: 2ND INF: MAR-2011
     Route: 042
     Dates: start: 20110215
  9. PLAQUENIL [Concomitant]
  10. MINIPRESS [Concomitant]
  11. METFORMIN HCL [Concomitant]
  12. ARAVA [Concomitant]
  13. ENDEP [Concomitant]

REACTIONS (8)
  - DIZZINESS [None]
  - HYPERTENSION [None]
  - HEADACHE [None]
  - PARAESTHESIA ORAL [None]
  - HEAD DISCOMFORT [None]
  - SWOLLEN TONGUE [None]
  - HYPOAESTHESIA [None]
  - PRESYNCOPE [None]
